FAERS Safety Report 9628413 (Version 1)
Quarter: 2013Q4

REPORT INFORMATION
  Report Type: Spontaneous
  Country: US (occurrence: US)
  Receive Date: 20131017
  Receipt Date: 20131017
  Transmission Date: 20140711
  Serious: No
  Sender: FDA-Public Use
  Company Number: US-PFIZER INC-2013296981

PATIENT
  Age: 21 Year
  Sex: Male
  Weight: 92.97 kg

DRUGS (2)
  1. CHANTIX [Suspect]
     Indication: SMOKING CESSATION THERAPY
     Dosage: 0.5 MG, 1X/DAY
     Route: 048
     Dates: start: 20131015
  2. HYDROCODONE [Suspect]
     Indication: BACK PAIN
     Dosage: UNK

REACTIONS (1)
  - Drug ineffective [Unknown]
